FAERS Safety Report 6977499-X (Version None)
Quarter: 2010Q3

REPORT INFORMATION
  Report Type: 
  Country: None (occurrence: None)
  Receive Date: 20100910
  Receipt Date: 20100902
  Transmission Date: 20110219
  Serious: Yes (Death)
  Sender: FDA-Public Use
  Company Number: CH-WATSON-2010-12144

PATIENT
  Age: 50 Year
  Sex: Female

DRUGS (6)
  1. CITALOPRAM HYDROBROMIDE [Suspect]
     Indication: DEPRESSION
     Dosage: UNK
  2. MIRTAZAPINE [Suspect]
     Indication: DEPRESSION
     Dosage: UNK
  3. TRAZODONE HYDROCHLORIDE [Suspect]
     Indication: DEPRESSION
     Dosage: UNK
  4. EXEMESTANE [Concomitant]
     Indication: BREAST CANCER
     Dosage: UNK
     Dates: start: 20060701, end: 20080501
  5. TRIPTORELIN [Concomitant]
     Indication: BREAST CANCER
     Dosage: UNK
     Dates: start: 20060701, end: 20080501
  6. ALCOHOL                            /00002101/ [Suspect]
     Indication: ALCOHOLISM
     Dosage: UNK

REACTIONS (2)
  - ACUTE HEPATIC FAILURE [None]
  - HEPATITIS ALCOHOLIC [None]
